FAERS Safety Report 15745243 (Version 2)
Quarter: 2019Q1

REPORT INFORMATION
  Report Type: Report from Study
  Country: PL (occurrence: PL)
  Receive Date: 20181220
  Receipt Date: 20190201
  Transmission Date: 20190417
  Serious: Yes (Hospitalization)
  Sender: FDA-Public Use
  Company Number: PL-ROCHE-2210168

PATIENT
  Age: 57 Year
  Sex: Male
  Weight: 85 kg

DRUGS (65)
  1. KETONAL (POLAND) [Concomitant]
     Route: 065
     Dates: start: 20180611, end: 20180611
  2. KETONAL (POLAND) [Concomitant]
     Route: 065
     Dates: start: 20181001, end: 20181001
  3. NEDAL [Concomitant]
     Active Substance: NEBIVOLOL HYDROCHLORIDE
     Indication: HYPERTENSION
     Route: 065
     Dates: start: 2014, end: 20180527
  4. ONDANSETRON [Concomitant]
     Active Substance: ONDANSETRON
     Route: 065
     Dates: start: 20180806, end: 20180806
  5. PARACETAMOL [Concomitant]
     Active Substance: ACETAMINOPHEN
     Route: 065
     Dates: start: 20180709, end: 20180709
  6. PARACETAMOL [Concomitant]
     Active Substance: ACETAMINOPHEN
     Route: 065
     Dates: start: 20181001, end: 20181001
  7. KETONAL (POLAND) [Concomitant]
     Indication: PREMEDICATION
     Route: 065
     Dates: start: 20180604, end: 20180604
  8. KETONAL (POLAND) [Concomitant]
     Route: 065
     Dates: start: 20180709, end: 20180709
  9. ONDANSETRON [Concomitant]
     Active Substance: ONDANSETRON
     Route: 065
     Dates: start: 20180723, end: 20180723
  10. ONDANSETRON [Concomitant]
     Active Substance: ONDANSETRON
     Route: 065
     Dates: start: 20181001, end: 20181001
  11. PARACETAMOL [Concomitant]
     Active Substance: ACETAMINOPHEN
     Route: 065
     Dates: start: 20181015, end: 20181015
  12. ACETAMINOPHEN. [Concomitant]
     Active Substance: ACETAMINOPHEN
     Indication: PREMEDICATION
     Route: 065
     Dates: start: 20180806, end: 20180806
  13. KETONAL (POLAND) [Concomitant]
     Route: 065
     Dates: start: 20180903, end: 20180903
  14. DIURESIN [Concomitant]
     Active Substance: INDAPAMIDE
     Indication: HYPERTENSION
     Route: 065
     Dates: start: 2014, end: 20180527
  15. ONDANSETRON [Concomitant]
     Active Substance: ONDANSETRON
     Route: 065
     Dates: start: 20180611, end: 20180611
  16. RANIGAST [Concomitant]
     Route: 065
     Dates: start: 20180625, end: 20180625
  17. ATEZOLIZUMAB. [Suspect]
     Active Substance: ATEZOLIZUMAB
     Indication: NON-SMALL CELL LUNG CANCER
     Route: 042
     Dates: start: 20180528
  18. ATEZOLIZUMAB. [Suspect]
     Active Substance: ATEZOLIZUMAB
     Dosage: DATE OF MOST RECENT DOSE PRIOR TO SAE AT 11:14
     Route: 042
     Dates: start: 20181015
  19. KETONAL (POLAND) [Concomitant]
     Route: 065
     Dates: start: 20180820, end: 20180820
  20. KETONAL (POLAND) [Concomitant]
     Route: 065
     Dates: start: 20180806, end: 20180806
  21. DIURESIN [Concomitant]
     Active Substance: INDAPAMIDE
     Route: 065
     Dates: start: 20180601, end: 20181201
  22. ONDANSETRON [Concomitant]
     Active Substance: ONDANSETRON
     Route: 065
     Dates: start: 20180820, end: 20180820
  23. RANIGAST [Concomitant]
     Route: 065
     Dates: start: 20180604, end: 20180604
  24. PARACETAMOL [Concomitant]
     Active Substance: ACETAMINOPHEN
     Indication: PREMEDICATION
     Route: 065
     Dates: start: 20180528, end: 20180528
  25. PARACETAMOL [Concomitant]
     Active Substance: ACETAMINOPHEN
     Route: 065
     Dates: start: 20180618, end: 20180618
  26. PARACETAMOL [Concomitant]
     Active Substance: ACETAMINOPHEN
     Route: 065
     Dates: start: 20180820, end: 20180820
  27. PARACETAMOL [Concomitant]
     Active Substance: ACETAMINOPHEN
     Route: 065
     Dates: start: 20180806, end: 20180806
  28. NEOPARIN [Concomitant]
     Indication: ANTICOAGULANT THERAPY
     Route: 065
     Dates: start: 20180531, end: 20181201
  29. KETONAL (POLAND) [Concomitant]
     Route: 065
     Dates: start: 20180723, end: 20180723
  30. KETONAL (POLAND) [Concomitant]
     Route: 065
     Dates: start: 20180917, end: 20180917
  31. ALNETA [Concomitant]
     Route: 065
     Dates: start: 20180601, end: 20180609
  32. ONDANSETRON [Concomitant]
     Active Substance: ONDANSETRON
     Route: 065
     Dates: start: 20180709, end: 20180709
  33. RANIGAST [Concomitant]
     Route: 065
     Dates: start: 20180709, end: 20180709
  34. RANIGAST [Concomitant]
     Route: 065
     Dates: start: 20180903, end: 20180903
  35. RANIGAST [Concomitant]
     Route: 065
     Dates: start: 20181015, end: 20181015
  36. PARACETAMOL [Concomitant]
     Active Substance: ACETAMINOPHEN
     Route: 065
     Dates: start: 20180604, end: 20180607
  37. PARACETAMOL [Concomitant]
     Active Substance: ACETAMINOPHEN
     Route: 065
     Dates: start: 20180611, end: 20180611
  38. PARACETAMOL [Concomitant]
     Active Substance: ACETAMINOPHEN
     Route: 065
     Dates: start: 20180618, end: 20180618
  39. RO 6874281 (FAP IL2V MAB) [Suspect]
     Active Substance: RO-6874281
     Indication: NON-SMALL CELL LUNG CANCER
     Route: 042
     Dates: start: 20180528
  40. KETONAL (POLAND) [Concomitant]
     Route: 065
     Dates: start: 20180618, end: 20180618
  41. ALNETA [Concomitant]
     Indication: HYPERTENSION
     Route: 065
     Dates: start: 2014, end: 20180527
  42. ALNETA [Concomitant]
     Route: 065
     Dates: start: 20180612, end: 20181201
  43. ONDANSETRON [Concomitant]
     Active Substance: ONDANSETRON
     Indication: PREMEDICATION
     Route: 065
     Dates: start: 20180528, end: 20180528
  44. ONDANSETRON [Concomitant]
     Active Substance: ONDANSETRON
     Route: 065
     Dates: start: 20180903, end: 20180903
  45. ONDANSETRON [Concomitant]
     Active Substance: ONDANSETRON
     Route: 065
     Dates: start: 20180917, end: 20180917
  46. RANIGAST [Concomitant]
     Route: 065
     Dates: start: 20180820, end: 20180820
  47. RANIGAST [Concomitant]
     Route: 065
     Dates: start: 20181001, end: 20181001
  48. PARACETAMOL [Concomitant]
     Active Substance: ACETAMINOPHEN
     Route: 065
     Dates: start: 20180903, end: 20180903
  49. KETONAL (POLAND) [Concomitant]
     Route: 065
     Dates: start: 20181015, end: 20181015
  50. NEDAL [Concomitant]
     Active Substance: NEBIVOLOL HYDROCHLORIDE
     Route: 065
     Dates: start: 20180601, end: 20180609
  51. ONDANSETRON [Concomitant]
     Active Substance: ONDANSETRON
     Route: 065
     Dates: start: 20180618, end: 20180618
  52. ONDANSETRON [Concomitant]
     Active Substance: ONDANSETRON
     Route: 065
     Dates: start: 20180625, end: 20180625
  53. RANIGAST [Concomitant]
     Indication: PREMEDICATION
     Route: 065
     Dates: start: 20180528, end: 20180528
  54. RANIGAST [Concomitant]
     Route: 065
     Dates: start: 20180618, end: 20180618
  55. RANIGAST [Concomitant]
     Route: 065
     Dates: start: 20180806, end: 20180806
  56. PARACETAMOL [Concomitant]
     Active Substance: ACETAMINOPHEN
     Route: 065
     Dates: start: 20180723, end: 20180723
  57. RO 6874281 (FAP IL2V MAB) [Suspect]
     Active Substance: RO-6874281
     Dosage: DATE OF MOST RECENT DOSE PRIOR TO SERIOUS ADVERSE EVENT (SAE): AT 12:54
     Route: 042
     Dates: start: 20181015
  58. MILURIT [Concomitant]
     Active Substance: ALLOPURINOL
     Indication: PROPHYLAXIS
     Route: 065
     Dates: start: 20180530, end: 20181201
  59. KETONAL (POLAND) [Concomitant]
     Route: 065
     Dates: start: 20180528, end: 20180528
  60. NEDAL [Concomitant]
     Active Substance: NEBIVOLOL HYDROCHLORIDE
     Route: 065
     Dates: start: 20180612, end: 20181201
  61. ONDANSETRON [Concomitant]
     Active Substance: ONDANSETRON
     Route: 065
     Dates: start: 20181015, end: 20181015
  62. RANIGAST [Concomitant]
     Route: 065
     Dates: start: 20180611, end: 20180611
  63. RANIGAST [Concomitant]
     Route: 065
     Dates: start: 20180723, end: 20180723
  64. RANIGAST [Concomitant]
     Route: 065
     Dates: start: 20180917, end: 20180917
  65. PARACETAMOL [Concomitant]
     Active Substance: ACETAMINOPHEN
     Route: 065
     Dates: start: 20180917, end: 20180917

REACTIONS (1)
  - Oesophageal fistula [Recovered/Resolved]

NARRATIVE: CASE EVENT DATE: 20181030
